FAERS Safety Report 16828412 (Version 1)
Quarter: 2019Q4

REPORT INFORMATION
  Report Type: Spontaneous
  Country: US (occurrence: US)
  Receive Date: 20190919
  Receipt Date: 20190919
  Transmission Date: 20200122
  Serious: Yes (Hospitalization, Disabling)
  Sender: FDA-Public Use
  Company Number: None

PATIENT
  Age: 56 Year
  Sex: Female
  Weight: 112.4 kg

DRUGS (22)
  1. CETIRIZINE [Concomitant]
     Active Substance: CETIRIZINE HYDROCHLORIDE
  2. HYDROCODONE/ACETAMINOPHEN [Concomitant]
     Active Substance: ACETAMINOPHEN\HYDROCODONE
  3. LISINOPRIL. [Concomitant]
     Active Substance: LISINOPRIL
  4. MUPIRICIN 2% OINTMENT [Concomitant]
  5. OXYBUTYNIN 10MG [Concomitant]
  6. TRULICITY PEN 1.5MG/0.5ML [Concomitant]
  7. EPIPEN [Concomitant]
     Active Substance: EPINEPHRINE
  8. ASPIRIN 81MG [Concomitant]
     Active Substance: ASPIRIN
  9. TOPIRAMATE 25MG [Concomitant]
     Active Substance: TOPIRAMATE
  10. INVOKANA [Suspect]
     Active Substance: CANAGLIFLOZIN
     Route: 048
  11. METFORMIN [Concomitant]
     Active Substance: METFORMIN HYDROCHLORIDE
  12. NYSTATIN 100,000 U/G CREAM [Concomitant]
  13. RANITIDINE. [Concomitant]
     Active Substance: RANITIDINE
  14. ATORVASTATIN 40MG [Concomitant]
     Active Substance: ATORVASTATIN
  15. BACTRIM DS [Concomitant]
     Active Substance: SULFAMETHOXAZOLE\TRIMETHOPRIM
  16. LANTUS SOLOSTAR [Concomitant]
     Active Substance: INSULIN GLARGINE
  17. TRIAMCINOLONE 0.1% OINTMENT [Concomitant]
  18. VITAMIN B12 1000MCG [Concomitant]
  19. GABAPENTIN. [Concomitant]
     Active Substance: GABAPENTIN
  20. DULOXETINE 120MG [Concomitant]
  21. FAMOTIDINE 20MG [Concomitant]
     Active Substance: FAMOTIDINE
  22. MORPHINE [Concomitant]
     Active Substance: MORPHINE

REACTIONS (2)
  - Finger amputation [None]
  - Gangrene [None]

NARRATIVE: CASE EVENT DATE: 20190824
